FAERS Safety Report 25681567 (Version 1)
Quarter: 2025Q3

REPORT INFORMATION
  Report Type: Spontaneous
  Country: ZA (occurrence: ZA)
  Receive Date: 20250814
  Receipt Date: 20250814
  Transmission Date: 20251020
  Serious: Yes (Other)
  Sender: RANBAXY
  Company Number: ZA-SUN PHARMACEUTICAL INDUSTRIES INC-2025R1-522606

PATIENT
  Age: 66 Year
  Sex: Male

DRUGS (1)
  1. RIVAROXABAN [Suspect]
     Active Substance: RIVAROXABAN
     Indication: Embolism
     Dosage: 20 MILLIGRAM, QD
     Route: 048
     Dates: start: 20250627, end: 20250710

REACTIONS (3)
  - Urinary retention [Recovering/Resolving]
  - Dyspnoea [Recovering/Resolving]
  - Vein disorder [Recovering/Resolving]
